FAERS Safety Report 13155699 (Version 2)
Quarter: 2017Q2

REPORT INFORMATION
  Report Type: Spontaneous
  Country: US (occurrence: US)
  Receive Date: 20170126
  Receipt Date: 20170626
  Transmission Date: 20170830
  Serious: No
  Sender: FDA-Public Use
  Company Number: US-ROCHE-GNE318018

PATIENT
  Age: 46 Year
  Sex: Female
  Weight: 66.74 kg

DRUGS (2)
  1. ALTEPLASE [Suspect]
     Active Substance: ALTEPLASE
     Indication: CEREBROVASCULAR ACCIDENT
     Route: 041
  2. TENECTEPLASE [Suspect]
     Active Substance: TENECTEPLASE
     Indication: CEREBROVASCULAR ACCIDENT
     Dosage: 6.5 MG, SINGLE
     Route: 040
     Dates: start: 20110416

REACTIONS (1)
  - Medication error [Recovered/Resolved]

NARRATIVE: CASE EVENT DATE: 20110416
